FAERS Safety Report 8556329-9 (Version None)
Quarter: 2012Q3

REPORT INFORMATION
  Report Type: 
  Country: None (occurrence: None)
  Receive Date: 20120801
  Receipt Date: 20120726
  Transmission Date: 20120928
  Serious: Yes (Hospitalization)
  Sender: FDA-Public Use
  Company Number: JP-009507513-1202USA02477

PATIENT

DRUGS (14)
  1. AMLODIPINE BESYLATE [Concomitant]
     Indication: HYPERTENSION
     Dosage: 5 MG, QD
     Route: 048
     Dates: start: 20110919
  2. PEGINTERFERON ALFA-2B [Suspect]
     Dosage: 68 ?G, QW
     Route: 058
     Dates: start: 20111026, end: 20111129
  3. PEGINTERFERON ALFA-2B [Suspect]
     Indication: HEPATITIS C
     Dosage: 100 ?G, QW
     Route: 058
     Dates: start: 20111019, end: 20111019
  4. PEGINTERFERON ALFA-2B [Suspect]
     Dosage: 100 ?G, QW
     Route: 058
     Dates: start: 20111206, end: 20120214
  5. XYZAL [Concomitant]
     Indication: PSORIASIS
  6. CLOBETASOL PROPIONATE [Concomitant]
     Dosage: 1 UNK, PRN
     Route: 061
     Dates: start: 20120117
  7. PLACEBO [Suspect]
     Indication: HEPATITIS C
     Route: 048
     Dates: start: 20111019, end: 20120221
  8. RIBAVIRIN [Suspect]
     Indication: HEPATITIS C
     Dosage: 400 MG, BID
     Route: 048
     Dates: start: 20111019, end: 20120221
  9. XYZAL [Concomitant]
     Indication: RASH
     Dosage: 5 MG, QD
     Route: 048
     Dates: start: 20120117
  10. CLOBETASOL PROPIONATE [Concomitant]
     Indication: RASH
     Dosage: 1 UNK, PRN
     Route: 061
     Dates: start: 20120117
  11. CLOBETASOL PROPIONATE [Concomitant]
  12. PANDEL [Concomitant]
     Indication: RASH
     Dosage: 1 UNK, PRN
     Route: 061
     Dates: start: 20120117
  13. CLOBETASOL PROPIONATE [Concomitant]
     Indication: PSORIASIS
  14. PANDEL [Concomitant]
     Indication: PSORIASIS

REACTIONS (1)
  - DIABETES MELLITUS [None]
